FAERS Safety Report 7229779-0 (Version None)
Quarter: 2011Q1

REPORT INFORMATION
  Report Type: 
  Country: None (occurrence: None)
  Receive Date: 20110117
  Receipt Date: 20110111
  Transmission Date: 20110831
  Serious: Yes (Other)
  Sender: FDA-Public Use
  Company Number: CH-PFIZER INC-CH-WYE-G04803509

PATIENT
  Age: 28 Year
  Sex: Female

DRUGS (15)
  1. PROMAZINE [Suspect]
     Indication: BIPOLAR DISORDER
     Dosage: AS NEEDED, MAXIMAL DAILY DOSE 150 MG
     Route: 065
  2. RITALIN [Suspect]
     Indication: DISTURBANCE IN ATTENTION
     Dosage: 40 MG, 2X/DAY
     Route: 065
  3. BUSCOPAN [Suspect]
     Indication: CHOLECYSTITIS ACUTE
     Dosage: AS NEEDED, MAXIMAL DAILY DOSE 10 MG 3X DAILY
     Route: 065
  4. DAFALGAN [Suspect]
     Dosage: AS NEEDED, MAXIMAL DOSE 500 MG 6X DAILY
     Route: 065
  5. LAMICTAL [Suspect]
     Indication: BIPOLAR DISORDER
     Dosage: 100 MG, 2X DAILY
     Route: 065
  6. COCAINE [Suspect]
     Dosage: PERIODIC ABUSE OF COCAINE
     Route: 065
  7. TEMESTA [Suspect]
     Dosage: AS NEEDED, MAXIMAL DOSE 2 MG DAILY
     Route: 065
  8. NEXIUM [Suspect]
     Dosage: 40 MG, 1X/DAY
     Route: 065
  9. PASPERTIN [Suspect]
     Dosage: AS NEEDED,MAXIMAL DOSE 3MG 4X DAILY
     Route: 065
  10. SERTRALINE HYDROCHLORIDE [Suspect]
     Indication: DEPRESSION
     Dosage: 50 MG, 1X/DAY
     Route: 065
     Dates: start: 20090825
  11. CANNABIS [Suspect]
     Dosage: SIGNIFICANT USE OF CANNABIS
     Route: 065
  12. SEROQUEL [Suspect]
     Dosage: 650 MG DAILY, IF NEEDED MAXIMAL DAILY DOSE 800 MG
     Route: 065
  13. RIOPAN [Suspect]
     Dosage: AS NEEDED 800MG 6X DAILY
     Route: 065
  14. ZOVIRAX [Suspect]
     Indication: ORAL HERPES
     Dosage: AS NEEDEDM DOSE UNK
     Route: 066
     Dates: start: 20090828
  15. MEFENAMIC ACID [Suspect]
     Indication: CHOLECYSTITIS ACUTE
     Dosage: AS NEEDEDM MAXIMAL DOSE 599 MG 3X DAILY
     Route: 065

REACTIONS (5)
  - DEPRESSION [None]
  - CHOLECYSTITIS ACUTE [None]
  - CHOLESTASIS [None]
  - NEPHROLITHIASIS [None]
  - ABDOMINAL PAIN [None]
